FAERS Safety Report 15302679 (Version 1)
Quarter: 2018Q3

REPORT INFORMATION
  Report Type: Spontaneous
  Country: EG (occurrence: EG)
  Receive Date: 20180821
  Receipt Date: 20180821
  Transmission Date: 20181010
  Serious: Yes (Other)
  Sender: FDA-Public Use
  Company Number: PHHY2018EG075206

PATIENT
  Age: 20 Year
  Sex: Female

DRUGS (1)
  1. GLIVEC [Suspect]
     Active Substance: IMATINIB MESYLATE
     Indication: CHRONIC MYELOID LEUKAEMIA
     Dosage: 400 MG, QD
     Route: 048
     Dates: start: 201806, end: 201807

REACTIONS (4)
  - Hyperbilirubinaemia [Recovered/Resolved]
  - Jaundice [Unknown]
  - Haemolysis [Recovered/Resolved]
  - Blood bilirubin increased [Unknown]
